FAERS Safety Report 21658136 (Version 1)
Quarter: 2022Q4

REPORT INFORMATION
  Report Type: Spontaneous
  Country: US (occurrence: US)
  Receive Date: 20221129
  Receipt Date: 20221129
  Transmission Date: 20230113
  Serious: No
  Sender: FDA-Public Use
  Company Number: US-BAYER-2022P022423

PATIENT
  Age: 70 Year
  Sex: Female

DRUGS (2)
  1. ESTRADIOL [Suspect]
     Active Substance: ESTRADIOL
     Dosage: 0.037 MG, Q4WK
  2. ESTRADIOL [Suspect]
     Active Substance: ESTRADIOL
     Dosage: 0.037 MG, Q4WK
     Route: 062

REACTIONS (3)
  - Device adhesion issue [None]
  - Product quality issue [None]
  - Incorrect product administration duration [None]
